FAERS Safety Report 12375380 (Version 1)
Quarter: 2016Q2

REPORT INFORMATION
  Report Type: Spontaneous
  Country: US (occurrence: US)
  Receive Date: 20160517
  Receipt Date: 20160517
  Transmission Date: 20160815
  Serious: No
  Sender: FDA-Public Use
  Company Number: US-RELYPSA-RLY2016000014

PATIENT

DRUGS (14)
  1. VELTASSA [Suspect]
     Active Substance: PATIROMER
     Dosage: 16.8 G, QD
     Dates: start: 20160122, end: 20160124
  2. AMLODIPINE [Concomitant]
     Active Substance: AMLODIPINE BESYLATE
     Dosage: 81 MG, UNK
  3. ULORIC [Concomitant]
     Active Substance: FEBUXOSTAT
  4. TRADJENTA [Concomitant]
     Active Substance: LINAGLIPTIN
  5. EPLERENONE. [Concomitant]
     Active Substance: EPLERENONE
  6. TORSEMIDE. [Concomitant]
     Active Substance: TORSEMIDE
  7. ATORVASTATIN [Concomitant]
     Active Substance: ATORVASTATIN
  8. VELTASSA [Suspect]
     Active Substance: PATIROMER
     Indication: HYPERKALAEMIA
     Dosage: 8.4 G, QD
     Dates: start: 201601, end: 20160121
  9. COREG [Concomitant]
     Active Substance: CARVEDILOL
  10. ZEMPLAR [Concomitant]
     Active Substance: PARICALCITOL
  11. TERAZOSIN [Concomitant]
     Active Substance: TERAZOSIN\TERAZOSIN HYDROCHLORIDE
  12. CLOPIDOGREL [Concomitant]
     Active Substance: CLOPIDOGREL BISULFATE
     Dosage: 75 MG, UNK
  13. TEKTURNA [Concomitant]
     Active Substance: ALISKIREN HEMIFUMARATE
  14. GUANFACINE. [Concomitant]
     Active Substance: GUANFACINE

REACTIONS (1)
  - Blood potassium increased [Unknown]

NARRATIVE: CASE EVENT DATE: 20160121
